FAERS Safety Report 6942022-2 (Version None)
Quarter: 2010Q3

REPORT INFORMATION
  Report Type: 
  Country: None (occurrence: None)
  Receive Date: 20100826
  Receipt Date: 20100813
  Transmission Date: 20110219
  Serious: Yes (Other)
  Sender: FDA-Public Use
  Company Number: PHHY2009GB54270

PATIENT
  Sex: Male

DRUGS (17)
  1. GLEEVEC [Suspect]
     Indication: CHRONIC MYELOID LEUKAEMIA
     Dosage: 400 MG, QD
     Route: 048
     Dates: start: 20080403
  2. INSULIN GLARGINE [Concomitant]
     Indication: DIABETES MELLITUS
     Route: 058
  3. HUMALOG [Concomitant]
     Indication: DIABETES MELLITUS
     Route: 058
  4. METFORMIN HCL [Concomitant]
     Indication: DIABETES MELLITUS
     Dosage: 1000 MG, BID
  5. AMLODIPINE [Concomitant]
     Dosage: 5 MG, QD
  6. LISINOPRIL [Concomitant]
     Dosage: 20 MG, BID
  7. BENDROFLUMETHIAZIDE [Concomitant]
     Dosage: 5 MG, QD
  8. ATENOLOL [Concomitant]
     Dosage: 50 MG, QD
  9. ISOSORBIDE MONONITRATE [Concomitant]
     Dosage: 60 MG, QD
  10. ASPIRIN [Concomitant]
     Dosage: 75 MG, QD
  11. NICORANDIL [Concomitant]
     Dosage: 40 MG, QD
  12. LANSOPRAZOLE [Concomitant]
     Dosage: 30 MG, QD
  13. GABAPENTIN [Concomitant]
     Dosage: 300 MG, QD
  14. FERROUS SULFATE TAB [Concomitant]
     Dosage: 200 MG, QD
  15. SIMVASTATIN [Concomitant]
     Dosage: 10 MG, QD
  16. ATROPINE EYE OINTMENT [Concomitant]
     Dosage: UNK
  17. DORZOLAMIDE [Concomitant]

REACTIONS (5)
  - CARCINOID SYNDROME [None]
  - CYTOGENETIC ANALYSIS ABNORMAL [None]
  - DIARRHOEA [None]
  - LEUKAEMIA RECURRENT [None]
  - MALABSORPTION [None]
